FAERS Safety Report 4994465-4 (Version None)
Quarter: 2006Q2

REPORT INFORMATION
  Report Type: 
  Country: None (occurrence: None)
  Receive Date: 20060505
  Receipt Date: 20060426
  Transmission Date: 20061013
  Serious: Yes (Other)
  Sender: FDA-Public Use
  Company Number: GB-MERCK-0604GBR00145

PATIENT
  Age: 62 Year
  Sex: Female

DRUGS (5)
  1. ZOCOR [Suspect]
     Indication: BLOOD CHOLESTEROL INCREASED
     Route: 065
     Dates: start: 20060217, end: 20060314
  2. HYDROCHLOROTHIAZIDE AND LISINOPRIL [Concomitant]
     Indication: HYPERTENSION
     Route: 065
     Dates: start: 20051230
  3. LISINOPRIL [Concomitant]
     Indication: HYPERTENSION
     Route: 048
     Dates: start: 20051101, end: 20051230
  4. ACETAMINOPHEN [Concomitant]
     Indication: SHOULDER PAIN
     Route: 048
     Dates: start: 20060131
  5. DICLOFENAC [Concomitant]
     Indication: SHOULDER PAIN
     Route: 065
     Dates: start: 20000131

REACTIONS (1)
  - ASTHMA [None]
